FAERS Safety Report 16207843 (Version 1)
Quarter: 2019Q2

REPORT INFORMATION
  Report Type: Spontaneous
  Country: JP (occurrence: JP)
  Receive Date: 20190417
  Receipt Date: 20190417
  Transmission Date: 20190711
  Serious: Yes (Death, Hospitalization)
  Sender: FDA-Public Use
  Company Number: JP-TEVA-2019-JP-1038373

PATIENT
  Age: 74 Year
  Sex: Male

DRUGS (2)
  1. PREDNISOLONE. [Suspect]
     Active Substance: PREDNISOLONE
     Indication: NEPHROTIC SYNDROME
     Route: 065
  2. CYCLOSPORINE A [Suspect]
     Active Substance: CYCLOSPORINE
     Indication: NEPHROTIC SYNDROME
     Route: 065

REACTIONS (8)
  - Transaminases increased [Unknown]
  - Dehydration [Unknown]
  - Psychiatric symptom [Unknown]
  - Cerebellar infarction [Unknown]
  - Shock [Fatal]
  - Cerebral infarction [Unknown]
  - Diffuse large B-cell lymphoma [Unknown]
  - Renal impairment [Unknown]
